FAERS Safety Report 21311296 (Version 1)
Quarter: 2022Q3

REPORT INFORMATION
  Report Type: Spontaneous
  Country: US (occurrence: None)
  Receive Date: 20220909
  Receipt Date: 20220909
  Transmission Date: 20221026
  Serious: No
  Sender: FDA-Public Use
  Company Number: US-ARIS GLOBAL-202202-0312

PATIENT
  Sex: Male

DRUGS (29)
  1. OXERVATE [Suspect]
     Active Substance: CENEGERMIN-BKBJ
     Indication: Neurotrophic keratopathy
     Route: 047
     Dates: start: 20220217
  2. ACETAMINOPHEN\CODEINE PHOSPHATE [Concomitant]
     Active Substance: ACETAMINOPHEN\CODEINE PHOSPHATE
  3. ARTIFICIAL TEARS [Concomitant]
     Active Substance: GLYCERIN\HYPROMELLOSES\POLYETHYLENE GLYCOL 400
     Dosage: 0.1%-0.3%
  4. VITAMIN D3 [Concomitant]
     Active Substance: CHOLECALCIFEROL
  5. VITAMIN E [Concomitant]
     Active Substance: .ALPHA.-TOCOPHEROL
  6. MURO-128 [Concomitant]
  7. IMODIUM A-D [Concomitant]
     Active Substance: LOPERAMIDE HYDROCHLORIDE
  8. FERROUS SULFATE 325 [Concomitant]
     Dosage: 325(65) MG
  9. ENSURE COMPLETE [Concomitant]
     Dosage: 0.1 G-1.18 LIQUID
  10. BENEFIBER [Concomitant]
     Active Substance: STARCH, WHEAT
     Dosage: 3 G/3.8 G
  11. ASPIRIN [Concomitant]
     Active Substance: ASPIRIN
  12. FLOMAX [Concomitant]
     Active Substance: TAMSULOSIN HYDROCHLORIDE
  13. URSODIOL [Concomitant]
     Active Substance: URSODIOL
  14. POTASSIUM CHLORIDE [Concomitant]
     Active Substance: POTASSIUM CHLORIDE
  15. OMEPRAZOLE\SODIUM BICARBONATE [Concomitant]
     Active Substance: OMEPRAZOLE\SODIUM BICARBONATE
  16. HYDROCHLOROTHIAZIDE\LOSARTAN [Concomitant]
     Active Substance: HYDROCHLOROTHIAZIDE\LOSARTAN
  17. JANUVIA [Concomitant]
     Active Substance: SITAGLIPTIN PHOSPHATE
  18. GLIPIZIDE [Concomitant]
     Active Substance: GLIPIZIDE
  19. NEOMYCIN-POLYMYXIN-DEXAMETH [Concomitant]
  20. FLUOROMETHOLONE [Concomitant]
     Active Substance: FLUOROMETHOLONE
  21. DUTASTERIDE\TAMSULOSIN HYDROCHLORIDE [Concomitant]
     Active Substance: DUTASTERIDE\TAMSULOSIN HYDROCHLORIDE
  22. ATORVASTATIN CALCIUM [Concomitant]
     Active Substance: ATORVASTATIN CALCIUM
  23. BRILINTA [Concomitant]
     Active Substance: TICAGRELOR
  24. ALLOPURINOL [Concomitant]
     Active Substance: ALLOPURINOL
  25. CREON 3-9.5-15K [Concomitant]
     Dosage: DELAYED RELEASE
  26. CITRACAL-D3 PETITES [Concomitant]
  27. GABAPENTIN [Concomitant]
     Active Substance: GABAPENTIN
  28. LASIX [Concomitant]
     Active Substance: FUROSEMIDE
  29. B12 ACTIVE [Concomitant]

REACTIONS (1)
  - Ocular discomfort [Unknown]
